FAERS Safety Report 12435960 (Version 1)
Quarter: 2016Q2

REPORT INFORMATION
  Report Type: Spontaneous
  Country: US (occurrence: US)
  Receive Date: 20160604
  Receipt Date: 20160604
  Transmission Date: 20160815
  Serious: Yes (Hospitalization, Other)
  Sender: FDA-Public Use
  Company Number: US-SCIEGEN PHARMACEUTICALS INC-2016SCILIT00154

PATIENT
  Age: 15 Year
  Sex: Female

DRUGS (1)
  1. BUPROPION HYDROCHLORIDE. [Suspect]
     Active Substance: BUPROPION HYDROCHLORIDE
     Indication: PRODUCT USED FOR UNKNOWN INDICATION
     Dosage: 150 MG, 90 TABLETS
     Route: 065

REACTIONS (13)
  - Pulseless electrical activity [Unknown]
  - Cardiomyopathy acute [Unknown]
  - Pulmonary haemorrhage [Unknown]
  - Pulmonary oedema [Unknown]
  - Pneumonia aspiration [Unknown]
  - Hypoxia [Recovering/Resolving]
  - Mydriasis [Unknown]
  - Blood potassium decreased [None]
  - Sinus tachycardia [Unknown]
  - Epilepsy [Recovered/Resolved]
  - Drug abuse [Unknown]
  - Acute kidney injury [Unknown]
  - Status epilepticus [Recovered/Resolved]
